FAERS Safety Report 10208608 (Version 1)
Quarter: 2014Q2

REPORT INFORMATION
  Report Type: Spontaneous
  Country: FI (occurrence: FI)
  Receive Date: 20140530
  Receipt Date: 20140530
  Transmission Date: 20141212
  Serious: Yes (Hospitalization)
  Sender: FDA-Public Use
  Company Number: FI-BRISTOL-MYERS SQUIBB COMPANY-20797213

PATIENT
  Age: 33 Year
  Sex: Female

DRUGS (11)
  1. ORENCIA FOR INJ [Suspect]
     Indication: RHEUMATOID ARTHRITIS
     Route: 042
     Dates: start: 20130117
  2. OXIKLORIN [Concomitant]
     Indication: RHEUMATOID ARTHRITIS
     Dosage: FILM-COATED TABLET
     Route: 048
     Dates: start: 20090219
  3. METOJECT [Concomitant]
     Indication: RHEUMATOID ARTHRITIS
     Dosage: SOLUTION FOR INJECTION
     Route: 058
     Dates: start: 20100721
  4. PREDNISOLONE [Concomitant]
     Indication: RHEUMATOID ARTHRITIS
     Dosage: TABS
     Route: 048
     Dates: start: 20090219
  5. LYRICA [Concomitant]
     Indication: PAIN
     Dosage: CAPSULE HARD
     Route: 048
     Dates: start: 2009
  6. SOMAC [Concomitant]
     Indication: PROPHYLAXIS
     Dosage: GASTRO-RESISTANT TABLET
     Route: 048
     Dates: start: 2009
  7. NAPROXEN [Concomitant]
     Indication: PAIN
     Dosage: FILM-COATED TABLET
     Route: 048
     Dates: start: 2009
  8. CALCIUM [Concomitant]
     Route: 048
  9. KALCIPOS-D [Concomitant]
     Dosage: FILM-COATED TABLET?1DF=2 TABS
     Dates: start: 20090219
  10. FOLIC ACID [Concomitant]
     Route: 048
     Dates: start: 2009
  11. MERCILON [Concomitant]
     Dosage: 1DF=1 TABS
     Route: 048

REACTIONS (4)
  - Cerebellar infarction [Not Recovered/Not Resolved]
  - Headache [Not Recovered/Not Resolved]
  - Dizziness [Not Recovered/Not Resolved]
  - Intervertebral disc space narrowing [Not Recovered/Not Resolved]
